FAERS Safety Report 12632950 (Version 2)
Quarter: 2016Q3

REPORT INFORMATION
  Report Type: Spontaneous
  Country: US (occurrence: US)
  Receive Date: 20160808
  Receipt Date: 20160808
  Transmission Date: 20161109
  Serious: No
  Sender: FDA-Public Use
  Company Number: US-BEH-2016057729

PATIENT
  Age: 64 Year
  Sex: Female
  Weight: 88 kg

DRUGS (10)
  1. NEXIUM [Concomitant]
     Active Substance: ESOMEPRAZOLE MAGNESIUM
  2. EPI-PEN AUTOINJECTOR [Concomitant]
  3. PLAVIX [Concomitant]
     Active Substance: CLOPIDOGREL BISULFATE
  4. CYMBALTA [Concomitant]
     Active Substance: DULOXETINE HYDROCHLORIDE
     Dosage: DR
  5. SINGULAIR [Concomitant]
     Active Substance: MONTELUKAST SODIUM
  6. LIPITOR [Concomitant]
     Active Substance: ATORVASTATIN CALCIUM
  7. ATENOLOL. [Concomitant]
     Active Substance: ATENOLOL
  8. LMX [Concomitant]
     Active Substance: LIDOCAINE
  9. HIZENTRA [Suspect]
     Active Substance: HUMAN IMMUNOGLOBULIN G
     Route: 058
     Dates: start: 20150107
  10. TEMAZEPAM. [Concomitant]
     Active Substance: TEMAZEPAM

REACTIONS (1)
  - Bronchitis [Unknown]

NARRATIVE: CASE EVENT DATE: 20151118
